FAERS Safety Report 4956026-2 (Version None)
Quarter: 2006Q1

REPORT INFORMATION
  Report Type: 
  Country: None (occurrence: None)
  Receive Date: 20060328
  Receipt Date: 20051014
  Transmission Date: 20060701
  Serious: Yes (Death, Hospitalization)
  Sender: FDA-Public Use
  Company Number: US-MERCK-0510USA07513

PATIENT
  Age: 64 Year
  Sex: Female
  Weight: 99 kg

DRUGS (10)
  1. VIOXX [Suspect]
     Indication: ARTHRALGIA
     Route: 048
     Dates: start: 20000215, end: 20040921
  2. PREVACID [Concomitant]
     Indication: GASTROOESOPHAGEAL REFLUX DISEASE
     Route: 065
  3. ESTRADIOL [Concomitant]
     Indication: HORMONE REPLACEMENT THERAPY
     Route: 065
  4. POTASSIUM CHLORIDE [Concomitant]
     Indication: HYPOKALAEMIA
     Route: 065
  5. QUININE SULFATE [Concomitant]
     Indication: MUSCLE SPASMS
     Route: 065
  6. CLARITIN [Concomitant]
     Indication: HYPERSENSITIVITY
     Route: 065
  7. CIPRO [Concomitant]
     Route: 065
  8. K-DUR 10 [Concomitant]
     Indication: HYPOKALAEMIA
     Route: 065
  9. ASPIRIN [Concomitant]
     Route: 065
  10. ALLEGRA [Concomitant]
     Indication: HYPERSENSITIVITY
     Route: 065

REACTIONS (13)
  - ABDOMINAL NEOPLASM [None]
  - ANGINA PECTORIS [None]
  - ANHEDONIA [None]
  - CARDIAC FAILURE CONGESTIVE [None]
  - CORONARY ARTERY DISEASE [None]
  - DEATH [None]
  - DEEP VEIN THROMBOSIS [None]
  - HYPERTENSION [None]
  - INTESTINAL OBSTRUCTION [None]
  - MUSCULOSKELETAL DISORDER [None]
  - MYOCARDIAL INFARCTION [None]
  - OVARIAN CANCER [None]
  - PAIN [None]
